FAERS Safety Report 8016599-2 (Version None)
Quarter: 2011Q4

REPORT INFORMATION
  Report Type: 
  Country: None (occurrence: None)
  Receive Date: 20111230
  Receipt Date: 20111222
  Transmission Date: 20120403
  Serious: Yes (Other)
  Sender: FDA-Public Use
  Company Number: US-ASTRAZENECA-2010SE44571

PATIENT
  Age: 56 Year
  Sex: Female

DRUGS (1)
  1. NEXIUM [Suspect]
     Route: 048

REACTIONS (7)
  - ANGINA PECTORIS [None]
  - GASTROOESOPHAGEAL REFLUX DISEASE [None]
  - DYSPEPSIA [None]
  - BACK DISORDER [None]
  - DRUG DOSE OMISSION [None]
  - GASTRIC DISORDER [None]
  - IMPAIRED WORK ABILITY [None]
